FAERS Safety Report 11348192 (Version 4)
Quarter: 2016Q2

REPORT INFORMATION
  Report Type: Spontaneous
  Country: CA (occurrence: CA)
  Receive Date: 20150806
  Receipt Date: 20160425
  Transmission Date: 20160815
  Serious: Yes (Other)
  Sender: FDA-Public Use
  Company Number: CA-LPDUSPRD-20150595

PATIENT
  Age: 52 Year
  Sex: Female

DRUGS (13)
  1. SODIUM BICARBONATE. [Concomitant]
     Active Substance: SODIUM BICARBONATE
     Dosage: 500 MG TWICE DAILY
     Route: 065
  2. BISOPROLOL [Concomitant]
     Active Substance: BISOPROLOL
     Dosage: 7.5 MG/MORNING
     Route: 065
  3. MULTIVITAMINE [Concomitant]
     Dosage: DOSE UNKNOWN
     Route: 065
  4. AMLODIPINE [Concomitant]
     Active Substance: AMLODIPINE BESYLATE
     Dosage: 10MG IN AM/5MG IN PM
     Route: 065
  5. RAMIPRIL. [Concomitant]
     Active Substance: RAMIPRIL
     Dosage: 5 MG TWICE DAILY
     Route: 065
  6. REPLAVITE [Concomitant]
     Dosage: 1 TAB DAILY
     Route: 065
  7. DOCUSATE SODIUM. [Concomitant]
     Active Substance: DOCUSATE SODIUM
     Dosage: 100MG TWICE DAILY
     Route: 065
  8. FERROUS FUMARATE [Concomitant]
     Active Substance: FERROUS FUMARATE
     Dosage: 200 MG DAILY
     Route: 065
  9. PRAVASTATIN SODIUM. [Concomitant]
     Active Substance: PRAVASTATIN SODIUM
     Dosage: 10 MG BEDTIME
     Route: 065
  10. RAEBEPRAZOLE [Concomitant]
     Dosage: 100 MG DAILY
     Route: 065
  11. RATIO-OXYCOCET [Concomitant]
     Active Substance: ACETAMINOPHEN\OXYCODONE HYDROCHLORIDE
     Dosage: 1-2 TABS/4-6 HRS AS NEEDED
     Route: 065
  12. VENOFER [Suspect]
     Active Substance: IRON SUCROSE
     Dosage: 300.0 MG
     Route: 042
     Dates: start: 20150313
  13. TUMS [Concomitant]
     Active Substance: CALCIUM CARBONATE
     Dosage: 1 TABLET, TWICE DAILY
     Route: 065

REACTIONS (4)
  - Abdominal pain [Unknown]
  - Chest discomfort [Unknown]
  - Blood pressure decreased [Unknown]
  - Dizziness [Unknown]

NARRATIVE: CASE EVENT DATE: 20150313
